FAERS Safety Report 9392215 (Version 1)
Quarter: 2013Q3

REPORT INFORMATION
  Report Type: Spontaneous
  Country: CA (occurrence: CA)
  Receive Date: 20130710
  Receipt Date: 20130710
  Transmission Date: 20140515
  Serious: Yes (Hospitalization, Other)
  Sender: FDA-Public Use
  Company Number: CA-ROCHE-1246774

PATIENT
  Age: 47 Year
  Sex: Female

DRUGS (4)
  1. XELODA [Suspect]
     Indication: PRODUCT USED FOR UNKNOWN INDICATION
     Dosage: TABLET
     Route: 065
  2. TYKERB [Suspect]
     Indication: PRODUCT USED FOR UNKNOWN INDICATION
     Route: 048
  3. METOCLOPRAMIDE HCL [Concomitant]
     Route: 065
  4. SYNTHROID [Concomitant]

REACTIONS (3)
  - Bile duct obstruction [Not Recovered/Not Resolved]
  - Liver disorder [Not Recovered/Not Resolved]
  - Metastasis [Not Recovered/Not Resolved]
